FAERS Safety Report 6767898-3 (Version None)
Quarter: 2010Q2

REPORT INFORMATION
  Report Type: 
  Country: None (occurrence: None)
  Receive Date: 20100614
  Receipt Date: 20100601
  Transmission Date: 20101027
  Serious: No
  Sender: FDA-Public Use
  Company Number: US-B.I. PHARMACEUTICALS,INC./RIDGEFIELD-2010-BP-06150BP

PATIENT
  Age: 40 Year
  Sex: Female

DRUGS (3)
  1. ZANTAC 150 [Suspect]
     Indication: GASTROOESOPHAGEAL REFLUX DISEASE
     Route: 048
  2. OXYCODONE [Concomitant]
     Indication: PAIN
  3. XANAX [Concomitant]

REACTIONS (1)
  - DRUG SCREEN POSITIVE [None]
